FAERS Safety Report 13896119 (Version 1)
Quarter: 2017Q3

REPORT INFORMATION
  Report Type: Spontaneous
  Country: DE (occurrence: DE)
  Receive Date: 20170823
  Receipt Date: 20170823
  Transmission Date: 20171127
  Serious: Yes (Other)
  Sender: FDA-Public Use
  Company Number: DE-JNJFOC-20170816580

PATIENT
  Sex: Male

DRUGS (4)
  1. REGAINE MAENNER [Suspect]
     Active Substance: MINOXIDIL
     Indication: ANDROGENETIC ALOPECIA
     Route: 065
     Dates: start: 2011
  2. CORTISONE [Concomitant]
     Active Substance: CORTISONE\HYDROCORTISONE
     Indication: ASTHMA
     Route: 065
  3. SALBUTAMOL [Concomitant]
     Active Substance: ALBUTEROL
     Indication: ASTHMA
     Route: 065
  4. REGAINE MAENNER [Suspect]
     Active Substance: MINOXIDIL
     Route: 065

REACTIONS (1)
  - Arrhythmia [Not Recovered/Not Resolved]
